FAERS Safety Report 11291122 (Version 1)
Quarter: 2015Q3

REPORT INFORMATION
  Report Type: Report from Study
  Country: US (occurrence: US)
  Receive Date: 20150722
  Receipt Date: 20150722
  Transmission Date: 20151125
  Serious: Yes (Other)
  Sender: FDA-Public Use
  Company Number: PHEH2015US013386

PATIENT
  Sex: Female
  Weight: 80.27 kg

DRUGS (5)
  1. NUVARING [Concomitant]
     Active Substance: ETHINYL ESTRADIOL\ETONOGESTREL
     Indication: PRODUCT USED FOR UNKNOWN INDICATION
     Route: 065
  2. OMEPRAZOLE. [Concomitant]
     Active Substance: OMEPRAZOLE
     Indication: PRODUCT USED FOR UNKNOWN INDICATION
     Dosage: UNK
     Route: 065
  3. ATIVAN [Concomitant]
     Active Substance: LORAZEPAM
     Indication: TOBACCO ABUSE
     Route: 065
  4. NICODERM CQ [Concomitant]
     Active Substance: NICOTINE
     Indication: TOBACCO ABUSE
     Dosage: 7 MG / 24 HRS
     Route: 062
  5. GILENYA [Suspect]
     Active Substance: FINGOLIMOD HYDROCHLORIDE
     Indication: MULTIPLE SCLEROSIS
     Dosage: 0.5 MG, QD
     Route: 048
     Dates: start: 20141016

REACTIONS (10)
  - Blood lactate dehydrogenase increased [Unknown]
  - Essential hypertension [Unknown]
  - Transaminases increased [Unknown]
  - Pain [Unknown]
  - Lymphocyte count decreased [Unknown]
  - Cough [Unknown]
  - Constipation [Unknown]
  - Central nervous system lesion [Unknown]
  - Headache [Unknown]
  - Lhermitte^s sign [Unknown]
